FAERS Safety Report 4502575-0 (Version None)
Quarter: 2004Q4

REPORT INFORMATION
  Report Type: 
  Country: None (occurrence: None)
  Receive Date: 20041112
  Receipt Date: 20041102
  Transmission Date: 20050328
  Serious: Yes (Other)
  Sender: FDA-Public Use
  Company Number: 25563

PATIENT
  Age: 43 Year
  Sex: Male

DRUGS (3)
  1. ALDARA [Suspect]
     Indication: ACTINIC KERATOSIS
     Dosage: 1 IN 1 DAY(S), TOPICAL
     Route: 061
     Dates: start: 20040914, end: 20040926
  2. DRIXORAL (DEXBROMPHENIRAMINE/PSEUDOEPHEDRINE) [Concomitant]
  3. BENADRYL [Concomitant]

REACTIONS (10)
  - ANOREXIA [None]
  - APPLICATION SITE ERYTHEMA [None]
  - CONJUNCTIVITIS [None]
  - ERYTHEMA MULTIFORME [None]
  - HEADACHE [None]
  - INFLUENZA LIKE ILLNESS [None]
  - LIP EROSION [None]
  - MALAISE [None]
  - RASH VESICULAR [None]
  - STOMATITIS [None]
